FAERS Safety Report 10376119 (Version 2)
Quarter: 2014Q3

REPORT INFORMATION
  Report Type: Spontaneous
  Country: BE (occurrence: BE)
  Receive Date: 20140811
  Receipt Date: 20140811
  Transmission Date: 20150326
  Serious: Yes (Other)
  Sender: FDA-Public Use
  Company Number: BE-ABBVIE-14K-013-1245888-00

PATIENT
  Age: 21 Year
  Sex: Male

DRUGS (1)
  1. HUMIRA [Suspect]
     Active Substance: ADALIMUMAB
     Indication: PRODUCT USED FOR UNKNOWN INDICATION
     Dates: end: 20140527

REACTIONS (4)
  - Psoriasis [Unknown]
  - Folliculitis [Unknown]
  - Acne conglobata [Unknown]
  - Hidradenitis [Unknown]

NARRATIVE: CASE EVENT DATE: 200905
